FAERS Safety Report 13759198 (Version 1)
Quarter: 2017Q3

REPORT INFORMATION
  Report Type: Spontaneous
  Country: US (occurrence: US)
  Receive Date: 20170717
  Receipt Date: 20170717
  Transmission Date: 20171127
  Serious: No
  Sender: FDA-Public Use
  Company Number: US-LUNDBECK-DKLU2033226

PATIENT
  Age: 46 Year
  Sex: Female

DRUGS (1)
  1. NORTHERA [Suspect]
     Active Substance: DROXIDOPA
     Indication: PRODUCT USED FOR UNKNOWN INDICATION
     Dosage: SCHEDULE C (TITRATING)
     Route: 048
     Dates: start: 20170621

REACTIONS (4)
  - Syncope [Unknown]
  - Abdominal distension [Unknown]
  - Abdominal discomfort [Unknown]
  - Hypotension [Unknown]

NARRATIVE: CASE EVENT DATE: 20170621
